FAERS Safety Report 13563863 (Version 1)
Quarter: 2017Q2

REPORT INFORMATION
  Report Type: Spontaneous
  Country: FR (occurrence: FR)
  Receive Date: 20170519
  Receipt Date: 20170519
  Transmission Date: 20170830
  Serious: Yes (Life-Threatening, Hospitalization, Other)
  Sender: FDA-Public Use
  Company Number: FR-ASTRAZENECA-2017SE53487

PATIENT
  Age: 20938 Day
  Sex: Male

DRUGS (6)
  1. TERALITHE [Concomitant]
     Active Substance: LITHIUM CARBONATE
  2. DEPAKOTE [Concomitant]
     Active Substance: DIVALPROEX SODIUM
  3. VIRAMUNE [Concomitant]
     Active Substance: NEVIRAPINE
     Dosage: 200, 2 DOSE FORMS THREE TIMES A DAY IN THE MORNING, AT NOON AND AT NIGHT
  4. XEROQUEL [Suspect]
     Active Substance: QUETIAPINE FUMARATE
     Route: 048
     Dates: end: 20170331
  5. AOTAL [Concomitant]
     Active Substance: ACAMPROSATE CALCIUM
  6. PARACETAMOL [Suspect]
     Active Substance: ACETAMINOPHEN
     Indication: PAIN
     Dosage: 2 CAPSULES,  IF REQUIRED FOR PAIN, FOUR TIMES A DAY MAX.
     Route: 048

REACTIONS (4)
  - Liver injury [Recovered/Resolved]
  - Hypotension [Recovered/Resolved]
  - Coma [Recovered/Resolved]
  - Vomiting [Recovered/Resolved]

NARRATIVE: CASE EVENT DATE: 20170331
